FAERS Safety Report 8239687-4 (Version None)
Quarter: 2012Q1

REPORT INFORMATION
  Report Type: 
  Country: None (occurrence: None)
  Receive Date: 20120328
  Receipt Date: 20120323
  Transmission Date: 20120608
  Serious: Yes (Hospitalization, Other)
  Sender: FDA-Public Use
  Company Number: AU-SANOFI-AVENTIS-2012SA015432

PATIENT
  Age: 71 Year
  Sex: Male

DRUGS (6)
  1. ASPIRIN [Concomitant]
  2. METFORMIN HCL [Concomitant]
  3. ARAVA [Suspect]
     Route: 048
     Dates: start: 20101105
  4. NOVORAPID [Concomitant]
  5. ISOPTIN [Concomitant]
  6. TAMSULOSIN HCL [Concomitant]

REACTIONS (2)
  - PANCREATITIS [None]
  - PULMONARY EMBOLISM [None]
